FAERS Safety Report 10724461 (Version 1)
Quarter: 2015Q1

REPORT INFORMATION
  Report Type: Spontaneous
  Country: US (occurrence: None)
  Receive Date: 20150115
  Receipt Date: 20150115
  Transmission Date: 20150721
  Serious: Yes (Other)
  Sender: FDA-Public Use
  Company Number: US-H14001-15-00040

PATIENT
  Age: 69 Year

DRUGS (4)
  1. CYCLOPHOSPHAMIDE (CYCLOPHOSPHAMIDE) (CYCLOPHOSPHAMIDE) [Suspect]
     Active Substance: CYCLOPHOSPHAMIDE
     Indication: PLASMA CELL MYELOMA
     Dosage: 760 MG, 4 DAYS COURSE, INTRAVENOUS (NOT OTHERWISE SPECIFIED)
     Route: 042
     Dates: start: 20110803, end: 20110807
  2. DEXAMETHASONE (DEXAMETHASONE SODIUM PHOSPHATE) (UNKNOWN) (DEXAMETHASONE SODIUM PHOSPHATE) [Suspect]
     Active Substance: DEXAMETHASONE
     Indication: PLASMA CELL MYELOMA
     Dosage: 40 MG, 4 DAY COURSE, INTRAVENOUS NOT OTHERWISE SPECIFIED
     Route: 042
     Dates: start: 20110803, end: 20110807
  3. ETOPOSIDE (ETOPOSIDE) (UNKNOWN) (ETOPOSIDE) [Suspect]
     Active Substance: ETOPOSIDE
     Indication: PLASMA CELL MYELOMA
     Dosage: 76 MG, 4 DAY COURSE, INTRAVENOUS NOT OTHERWISE SPECIFIED
     Route: 042
     Dates: start: 20110803, end: 20110807
  4. CISPLATIN (CISPLATIN) (CISPLATIN) [Suspect]
     Active Substance: CISPLATIN
     Indication: PLASMA CELL MYELOMA
     Dosage: 28 MG, 4 DAY COURSE, INTRAVENOUS (NOT OTHERWISE SPECIFIED)
     Route: 042
     Dates: start: 20110803, end: 20110807

REACTIONS (1)
  - Pyrexia [None]

NARRATIVE: CASE EVENT DATE: 20110814
